FAERS Safety Report 8953042 (Version 1)
Quarter: 2012Q4

REPORT INFORMATION
  Report Type: 
  Country: CA (occurrence: CA)
  Receive Date: 20121205
  Receipt Date: 20121205
  Transmission Date: 20130627
  Serious: Yes (Hospitalization)
  Sender: FDA-Public Use
  Company Number: CA-B.I. PHARMACEUTICALS,INC./RIDGEFIELD-2012-CN-02182CN

PATIENT
  Sex: Male
  Weight: 81 kg

DRUGS (9)
  1. PRADAX [Suspect]
     Indication: ATRIAL FIBRILLATION
     Dosage: 220 mg
     Route: 048
     Dates: start: 201110, end: 20121017
  2. METOPROLOL [Concomitant]
     Dosage: 50 mg
  3. AMLODIPINE [Concomitant]
     Dosage: 10 mg
  4. RAMIPRIL [Concomitant]
     Dosage: 7.5 mg
  5. VITAMIN D [Concomitant]
     Dosage: 1000 U
  6. CALCIUM CARBONATE [Concomitant]
     Dosage: 500 mg
  7. PANTOPRAZOLE [Concomitant]
     Dosage: 40 mg
  8. COLACE [Concomitant]
     Dosage: 200 mg
  9. BUDESONIDE [Concomitant]
     Dosage: ii sprays each nostril od
     Route: 045

REACTIONS (2)
  - Subdural hygroma [Recovered/Resolved]
  - Fall [Recovered/Resolved]
